FAERS Safety Report 18494236 (Version 4)
Quarter: 2025Q2

REPORT INFORMATION
  Report Type: Report from Study
  Country: FR (occurrence: FR)
  Receive Date: 20201112
  Receipt Date: 20250402
  Transmission Date: 20250717
  Serious: Yes (Hospitalization)
  Sender: TAKEDA
  Company Number: FR-SHIRE-FR202009027

PATIENT
  Age: 33 Year
  Sex: Female
  Weight: 60 kg

DRUGS (23)
  1. TEDUGLUTIDE [Suspect]
     Active Substance: TEDUGLUTIDE
     Indication: Short-bowel syndrome
     Dosage: 2.6 MILLIGRAM, QD
     Dates: start: 20180217, end: 20180607
  2. TEDUGLUTIDE [Suspect]
     Active Substance: TEDUGLUTIDE
     Dosage: 2.9 MILLIGRAM, QD
     Dates: start: 20180608, end: 20181125
  3. TEDUGLUTIDE [Suspect]
     Active Substance: TEDUGLUTIDE
     Dosage: 2.8 MILLIGRAM, QD
     Dates: start: 20181126, end: 20190614
  4. TEDUGLUTIDE [Suspect]
     Active Substance: TEDUGLUTIDE
     Dosage: 2.6 MILLIGRAM, QD
     Dates: start: 20190615, end: 20191001
  5. TEDUGLUTIDE [Suspect]
     Active Substance: TEDUGLUTIDE
     Dosage: 2.8 MILLIGRAM, QD
     Dates: start: 20221208, end: 20240324
  6. TEDUGLUTIDE [Suspect]
     Active Substance: TEDUGLUTIDE
     Dosage: 2.6 MILLIGRAM, QD
     Dates: start: 20240325, end: 20250109
  7. FOLIC ACID [Concomitant]
     Active Substance: FOLIC ACID
     Indication: Pregnancy
     Dosage: 5 MILLIGRAM, TID
     Dates: start: 20191001
  8. RETINOL [Concomitant]
     Active Substance: RETINOL
     Indication: Vitamin A deficiency
  9. RETINOL [Concomitant]
     Active Substance: RETINOL
     Dosage: UNK UNK, QD
     Dates: start: 20230404
  10. VANCOMYCIN [Concomitant]
     Active Substance: VANCOMYCIN
     Indication: Lactic acidosis
     Dosage: 125 MILLIGRAM, TID
     Dates: start: 20200305, end: 20200315
  11. VANCOMYCIN [Concomitant]
     Active Substance: VANCOMYCIN
     Indication: Vascular device infection
     Dosage: 1000 GRAM, QD
     Dates: start: 20230227, end: 20230310
  12. VANCOMYCIN [Concomitant]
     Active Substance: VANCOMYCIN
     Dates: start: 20240918, end: 20240926
  13. VITAMIN D [Concomitant]
     Active Substance: VITAMIN D NOS
     Indication: Vitamin D deficiency
     Dosage: 1 DOSAGE FORM, QD
     Dates: start: 20200606
  14. LEVOCARNITINE [Concomitant]
     Active Substance: LEVOCARNITINE
     Indication: Carnitine deficiency
     Dosage: 1 DOSAGE FORM, TID
     Dates: start: 20200606, end: 202007
  15. CLINDAMYCIN [Concomitant]
     Active Substance: CLINDAMYCIN
     Indication: Prophylaxis
     Dosage: 300 MILLIGRAM, TID
     Dates: start: 20200206, end: 20200209
  16. ASCORBIC ACID [Concomitant]
     Active Substance: ASCORBIC ACID
     Indication: Vitamin C deficiency
     Dosage: 1 GRAM, QD
     Dates: start: 20230418
  17. SODIUM BICARBONATE [Concomitant]
     Active Substance: SODIUM BICARBONATE
     Indication: Lactic acidosis
     Dosage: UNK UNK, TID
     Dates: end: 20220301
  18. Previscan [Concomitant]
     Indication: Thrombosis
  19. CLINDAMYCIN [Concomitant]
     Active Substance: CLINDAMYCIN
     Indication: Prophylaxis
     Dosage: 300 MILLIGRAM, TID
     Dates: start: 20200206, end: 20200209
  20. CLOXACILLIN SODIUM [Concomitant]
     Active Substance: CLOXACILLIN SODIUM
     Indication: Sepsis
     Dates: start: 20210201, end: 20210205
  21. INNOHEP [Concomitant]
     Active Substance: TINZAPARIN SODIUM
     Indication: Sepsis
     Dosage: 0.5 MILLILITER, QD
     Dates: start: 20210205
  22. COPPER [Concomitant]
     Active Substance: COPPER
     Indication: Prophylaxis
     Dosage: 0.3 MILLIGRAM, 1/WEEK
     Dates: start: 20230404
  23. CEFAZOLIN SODIUM [Concomitant]
     Active Substance: CEFAZOLIN SODIUM
     Indication: Device related infection
     Dosage: 2000 MILLIGRAM, TID
     Dates: start: 20240926, end: 20241031

REACTIONS (2)
  - Nervous system disorder [Recovered/Resolved]
  - Vertigo [Recovered/Resolved]

NARRATIVE: CASE EVENT DATE: 20191201
